FAERS Safety Report 6604782-X (Version None)
Quarter: 2010Q1

REPORT INFORMATION
  Report Type: 
  Country: None (occurrence: None)
  Receive Date: 20100226
  Receipt Date: 20100126
  Transmission Date: 20100710
  Serious: No
  Sender: FDA-Public Use
  Company Number: US-BRISTOL-MYERS SQUIBB COMPANY-14943674

PATIENT
  Age: 76 Year
  Sex: Female
  Weight: 84 kg

DRUGS (3)
  1. ONGLYZA [Suspect]
     Indication: DIABETES MELLITUS
  2. ZESTRIL [Concomitant]
  3. METFORMIN HYDROCHLORIDE [Concomitant]

REACTIONS (2)
  - FALL [None]
  - MIDDLE EAR EFFUSION [None]
